FAERS Safety Report 7077856-X (Version None)
Quarter: 2010Q4

REPORT INFORMATION
  Report Type: 
  Country: None (occurrence: None)
  Receive Date: 20101101
  Receipt Date: 20101019
  Transmission Date: 20110411
  Serious: Yes (Death)
  Sender: FDA-Public Use
  Company Number: CH-ELI_LILLY_AND_COMPANY-CH201010004548

PATIENT
  Sex: Female

DRUGS (2)
  1. CYMBALTA [Suspect]
     Dates: start: 20100401
  2. VALIUM [Concomitant]

REACTIONS (1)
  - DEATH [None]
